FAERS Safety Report 10236317 (Version 1)
Quarter: 2014Q1

REPORT INFORMATION
  Report Type: Spontaneous
  Country: US (occurrence: None)
  Receive Date: 20140306
  Receipt Date: 20140306
  Transmission Date: 20141002
  Serious: Yes (Hospitalization)
  Sender: FDA-Public Use
  Company Number: 163-21880-13034702

PATIENT
  Age: 58 Year
  Sex: Female

DRUGS (1)
  1. REVLIMID (LENALIDOMIDE) (10 MILLIGRAM, CAPSULES) [Suspect]
     Indication: MYELODYSPLASTIC SYNDROME
     Dosage: 7.5 MG , 21 IN 28 D, PO  02/01/2013 - UNKNOWN THERAPY DATES
     Route: 048
     Dates: start: 20130201

REACTIONS (2)
  - Full blood count decreased [None]
  - Bacteraemia [None]
